FAERS Safety Report 21387558 (Version 1)
Quarter: 2022Q3

REPORT INFORMATION
  Report Type: Spontaneous
  Country: CN (occurrence: CN)
  Receive Date: 20220928
  Receipt Date: 20220928
  Transmission Date: 20221027
  Serious: Yes (Other)
  Sender: FDA-Public Use
  Company Number: CN-PFIZER INC-PV202200070231

PATIENT
  Age: 49 Year
  Sex: Male
  Weight: 80 kg

DRUGS (3)
  1. CYTARABINE [Suspect]
     Active Substance: CYTARABINE
     Indication: Acute myeloid leukaemia
     Dosage: + 0.9% SODIUM CHLORIDE INJECTION 250ML PUMP INJECTION ONCE
     Dates: start: 20220726, end: 20220727
  2. CYTARABINE [Suspect]
     Active Substance: CYTARABINE
     Dosage: + 0.9% SODIUM CHLORIDE INJECTION 1ML SUBCUTANEOUS INJECTION
     Route: 058
     Dates: start: 20220728, end: 20220802
  3. MITOXANTRONE HYDROCHLORIDE [Suspect]
     Active Substance: MITOXANTRONE HYDROCHLORIDE
     Indication: Acute myeloid leukaemia
     Dosage: 18 MG, 1X/DAY
     Route: 041
     Dates: start: 20220726, end: 20220728

REACTIONS (8)
  - Myelosuppression [Recovering/Resolving]
  - Injection site haemorrhage [Recovering/Resolving]
  - Haemorrhage subcutaneous [Recovering/Resolving]
  - Conjunctival haemorrhage [Recovering/Resolving]
  - Dizziness [Unknown]
  - Asthenia [Unknown]
  - Back pain [Unknown]
  - Pain in extremity [Unknown]

NARRATIVE: CASE EVENT DATE: 20220804
